FAERS Safety Report 8064450-7 (Version None)
Quarter: 2012Q1

REPORT INFORMATION
  Report Type: 
  Country: None (occurrence: None)
  Receive Date: 20120123
  Receipt Date: 20120109
  Transmission Date: 20120608
  Serious: Yes (Other)
  Sender: FDA-Public Use
  Company Number: PHHY2012ES004508

PATIENT
  Age: 76 Year
  Sex: Male

DRUGS (1)
  1. RIVASTIGMINE TARTRATE [Suspect]
     Indication: DEMENTIA ALZHEIMER'S TYPE
     Dosage: 4.5 MG, DAILY
     Route: 048
     Dates: start: 20110719, end: 20111128

REACTIONS (3)
  - EXTRAPYRAMIDAL DISORDER [None]
  - HALLUCINATION [None]
  - SLEEP TERROR [None]
